FAERS Safety Report 16136796 (Version 2)
Quarter: 2019Q2

REPORT INFORMATION
  Report Type: Report from Study
  Country: CA (occurrence: CA)
  Receive Date: 20190401
  Receipt Date: 20190523
  Transmission Date: 20190711
  Serious: Yes (Other)
  Sender: FDA-Public Use
  Company Number: CA-AMGEN-CANCT2019042541

PATIENT
  Age: 39 Year
  Sex: Female

DRUGS (1)
  1. AIMOVIG [Suspect]
     Active Substance: ERENUMAB-AOOE
     Indication: MIGRAINE
     Dosage: 70 MILLIGRAM, UNK
     Route: 058
     Dates: start: 20190226

REACTIONS (4)
  - Fatigue [Unknown]
  - Constipation [Recovering/Resolving]
  - Somnolence [Unknown]
  - Narcolepsy [Unknown]

NARRATIVE: CASE EVENT DATE: 20190226
